FAERS Safety Report 5026802-9 (Version None)
Quarter: 2006Q2

REPORT INFORMATION
  Report Type: 
  Country: None (occurrence: None)
  Receive Date: 20060608
  Receipt Date: 20060601
  Transmission Date: 20061013
  Serious: No
  Sender: FDA-Public Use
  Company Number: ST-2006-008868

PATIENT
  Age: 86 Year
  Sex: Female
  Weight: 55 kg

DRUGS (8)
  1. OLMETEC [Suspect]
     Indication: HYPERTENSION
     Dosage: 20 MG QD PO
     Route: 048
     Dates: start: 20050506, end: 20060207
  2. LOCHOL [Suspect]
     Indication: HYPERCHOLESTEROLAEMIA
     Dosage: 20 MG QD PO
     Route: 048
     Dates: start: 20000704, end: 20060207
  3. VOLTAREN [Suspect]
     Indication: OSTEOARTHRITIS
     Dosage: 37.5 MG BID PO
     Route: 048
     Dates: start: 20050629, end: 20060207
  4. ALFAROL [Concomitant]
  5. ASPARA-CA [Concomitant]
  6. CYANOCOBALAMIN [Concomitant]
  7. SELBEX [Concomitant]
  8. KETOPROFEN [Concomitant]

REACTIONS (1)
  - ANAEMIA [None]
